FAERS Safety Report 24707499 (Version 1)
Quarter: 2024Q4

REPORT INFORMATION
  Report Type: Spontaneous
  Country: US (occurrence: US)
  Receive Date: 20241206
  Receipt Date: 20241206
  Transmission Date: 20250114
  Serious: No
  Sender: NOVO NORDISK
  Company Number: US-NOVOPROD-1254877

PATIENT
  Sex: Female

DRUGS (1)
  1. NOVOLIN N [Suspect]
     Active Substance: INSULIN HUMAN
     Indication: Type 2 diabetes mellitus
     Dosage: 25 UNITS AT NIGHT 10 UNITS IN THE MORNING
     Route: 058
     Dates: start: 20240517

REACTIONS (2)
  - Dialysis [Unknown]
  - Blood glucose increased [Unknown]
